FAERS Safety Report 5511050-6 (Version None)
Quarter: 2007Q4

REPORT INFORMATION
  Report Type: 
  Country: None (occurrence: None)
  Receive Date: 20071107
  Receipt Date: 20071025
  Transmission Date: 20080405
  Serious: Yes (Hospitalization)
  Sender: FDA-Public Use
  Company Number: 02100-JPN-07-0677

PATIENT
  Age: 76 Year
  Sex: Female

DRUGS (10)
  1. CILOSTAZOL [Suspect]
     Indication: CEREBRAL ARTERY STENOSIS
     Dosage: 200 MG
     Route: 048
     Dates: start: 20070824
  2. CLOPIDOGREL [Suspect]
     Dosage: 75 MG
     Route: 048
  3. ASPIRIN [Concomitant]
  4. CARVEDILOL [Concomitant]
  5. CITICOLINE [Concomitant]
  6. ATORVASTATIN CALCIUM [Concomitant]
  7. MAGNESIUM OXIDE [Concomitant]
  8. CALCIUM POLYCARBOPHIL [Concomitant]
  9. ANYTAL [Concomitant]
  10. LACIDIPINE [Concomitant]

REACTIONS (2)
  - ASTHENIA [None]
  - DYSARTHRIA [None]
